FAERS Safety Report 21976858 (Version 1)
Quarter: 2023Q1

REPORT INFORMATION
  Report Type: Spontaneous
  Country: CN (occurrence: CN)
  Receive Date: 20230210
  Receipt Date: 20230210
  Transmission Date: 20230417
  Serious: Yes (Hospitalization, Other)
  Sender: FDA-Public Use
  Company Number: None

PATIENT
  Age: 39 Year
  Sex: Female
  Weight: 63 kg

DRUGS (6)
  1. CYCLOPHOSPHAMIDE [Suspect]
     Active Substance: CYCLOPHOSPHAMIDE
     Indication: Chemotherapy
     Dosage: FOR ADJUVANT CHEMOTHERAPY (0.8G, QD, DILUTED WITH SODIUM CHLORIDE 100 ML)
     Route: 041
     Dates: start: 20230106, end: 20230106
  2. CYCLOPHOSPHAMIDE [Suspect]
     Active Substance: CYCLOPHOSPHAMIDE
     Indication: Breast cancer female
  3. SODIUM CHLORIDE [Suspect]
     Active Substance: SODIUM CHLORIDE
     Indication: Vehicle solution use
     Dosage: FOR ADJUVANT CHEMOTHERAPY (100 ML, QD USED TO DILUTE 0.8 G CYCLOPHOSPHAMIDE)
     Route: 041
     Dates: start: 20230106, end: 20230106
  4. DEXTROSE [Suspect]
     Active Substance: DEXTROSE
     Indication: Vehicle solution use
     Dosage: FOR ADJUVANT CHEMOTHERAPY (100 ML, QD USED TO DILUTE 60 MG EPIRUBICIN HYDROCHLORIDE)
     Route: 041
     Dates: start: 20230106, end: 20230106
  5. EPIRUBICIN HYDROCHLORIDE [Suspect]
     Active Substance: EPIRUBICIN HYDROCHLORIDE
     Indication: Chemotherapy
     Dosage: FOR ADJUVANT CHEMOTHERAPY (60 MG, QD, DILUTED WITH GLUCOSE 100ML)
     Route: 041
     Dates: start: 20230106, end: 20230106
  6. EPIRUBICIN HYDROCHLORIDE [Suspect]
     Active Substance: EPIRUBICIN HYDROCHLORIDE
     Indication: Breast cancer female

REACTIONS (1)
  - Myelosuppression [Recovering/Resolving]

NARRATIVE: CASE EVENT DATE: 20230109
